FAERS Safety Report 7623389-9 (Version None)
Quarter: 2011Q3

REPORT INFORMATION
  Report Type: 
  Country: None (occurrence: None)
  Receive Date: 20110720
  Receipt Date: 20110708
  Transmission Date: 20111222
  Serious: Yes (Hospitalization, Other)
  Sender: FDA-Public Use
  Company Number: JP-ROCHE-789964

PATIENT
  Age: 49 Year
  Sex: Female

DRUGS (29)
  1. MYCOPHENOLATE MOFETIL [Suspect]
     Route: 048
     Dates: start: 20040701, end: 20060101
  2. MYCOPHENOLATE MOFETIL [Suspect]
     Route: 048
     Dates: start: 20060323, end: 20060419
  3. MYCOPHENOLATE MOFETIL [Suspect]
     Route: 048
     Dates: start: 20060706, end: 20060813
  4. ZOVIRAX [Concomitant]
     Route: 048
     Dates: start: 20040219
  5. MAGNESIUM OXIDE [Concomitant]
     Route: 048
  6. MYCOPHENOLATE MOFETIL [Suspect]
     Route: 048
     Dates: start: 20040209, end: 20040213
  7. PREDNISOLONE [Suspect]
     Route: 048
     Dates: start: 20060101, end: 20070115
  8. ENALAPRIL MALEATE [Concomitant]
     Route: 048
     Dates: start: 20040211, end: 20050101
  9. LIPITOR [Concomitant]
     Route: 048
  10. ALENDRONATE SODIUM [Concomitant]
     Route: 048
     Dates: end: 20080101
  11. MYCOPHENOLATE MOFETIL [Suspect]
     Route: 048
     Dates: start: 20080612, end: 20080723
  12. PREDNISOLONE [Suspect]
     Route: 048
     Dates: start: 20040213, end: 20060101
  13. SOLU-MEDROL [Concomitant]
     Route: 042
     Dates: start: 20040206, end: 20040212
  14. SULFAMETHOXAZOLE [Concomitant]
     Route: 048
     Dates: start: 20040216
  15. MYCOPHENOLATE MOFETIL [Suspect]
     Route: 048
     Dates: start: 20040214, end: 20040218
  16. ASPIRIN [Concomitant]
     Dosage: FORM: ENTERIC COATING DRUG.
     Route: 048
     Dates: start: 20040216
  17. RABEPRAZOLE SODIUM [Concomitant]
     Route: 048
  18. MYCOPHENOLATE MOFETIL [Suspect]
     Route: 048
     Dates: start: 20060420, end: 20060705
  19. DIFLUCAN [Concomitant]
     Route: 048
     Dates: start: 20040227
  20. NORVASC [Concomitant]
     Route: 048
     Dates: start: 20040301
  21. ALENDRONATE SODIUM [Concomitant]
     Route: 048
     Dates: start: 20080101
  22. FERROUS CITRATE [Concomitant]
     Route: 048
     Dates: start: 20050526
  23. URINORM [Concomitant]
     Route: 048
     Dates: start: 20060323
  24. MYCOPHENOLATE MOFETIL [Suspect]
     Route: 048
     Dates: start: 20040219, end: 20040224
  25. MYCOPHENOLATE MOFETIL [Suspect]
     Route: 048
     Dates: start: 20040225, end: 20040630
  26. MYCOPHENOLATE MOFETIL [Suspect]
     Route: 048
     Dates: end: 20060322
  27. MYCOPHENOLATE MOFETIL [Suspect]
     Route: 048
     Dates: start: 20060814, end: 20080611
  28. NEORAL [Suspect]
     Route: 048
     Dates: start: 20040207
  29. VALGANCICLOVIR [Suspect]
     Route: 048
     Dates: start: 20080530

REACTIONS (4)
  - FOOT FRACTURE [None]
  - WHITE BLOOD CELL COUNT DECREASED [None]
  - CYTOMEGALOVIRUS VIRAEMIA [None]
  - EPSTEIN-BARR VIRAEMIA [None]
